FAERS Safety Report 19500734 (Version 1)
Quarter: 2021Q3

REPORT INFORMATION
  Report Type: Spontaneous
  Country: US (occurrence: US)
  Receive Date: 20210707
  Receipt Date: 20210707
  Transmission Date: 20211014
  Serious: Yes (Other)
  Sender: FDA-Public Use
  Company Number: US-GLAXOSMITHKLINE-US2021GSK141560

PATIENT
  Sex: Female

DRUGS (14)
  1. ZANTAC [Suspect]
     Active Substance: RANITIDINE HYDROCHLORIDE
     Indication: VOMITING
  2. ZANTAC [Suspect]
     Active Substance: RANITIDINE HYDROCHLORIDE
     Indication: ABDOMINAL DISCOMFORT
     Dosage: 300 MG, BID
     Route: 065
     Dates: start: 201501, end: 202006
  3. RANITIDINE. [Suspect]
     Active Substance: RANITIDINE
     Indication: ABDOMINAL DISCOMFORT
     Dosage: 300 MG, BID
     Route: 065
     Dates: start: 201501, end: 202006
  4. ZANTAC [Suspect]
     Active Substance: RANITIDINE HYDROCHLORIDE
     Indication: ABDOMINAL DISCOMFORT
     Dosage: 300 MG, BID
     Route: 065
     Dates: start: 201501, end: 202006
  5. ZANTAC [Suspect]
     Active Substance: RANITIDINE HYDROCHLORIDE
     Indication: ABDOMINAL DISCOMFORT
     Dosage: 300 MG, BID
     Route: 065
     Dates: start: 201501, end: 202006
  6. RANITIDINE. [Suspect]
     Active Substance: RANITIDINE
     Indication: ABDOMINAL DISCOMFORT
     Dosage: 300 MG, BID
     Route: 065
     Dates: start: 201501, end: 202006
  7. ZANTAC [Suspect]
     Active Substance: RANITIDINE HYDROCHLORIDE
     Indication: VOMITING
  8. RANITIDINE. [Suspect]
     Active Substance: RANITIDINE
     Indication: ABDOMINAL DISCOMFORT
     Dosage: 300 MG, BID
     Route: 065
     Dates: start: 201501, end: 202006
  9. RANITIDINE. [Suspect]
     Active Substance: RANITIDINE
     Indication: VOMITING
  10. RANITIDINE. [Suspect]
     Active Substance: RANITIDINE
     Indication: VOMITING
  11. ZANTAC [Suspect]
     Active Substance: RANITIDINE HYDROCHLORIDE
     Indication: VOMITING
  12. RANITIDINE CAPSULE [Suspect]
     Active Substance: RANITIDINE
     Indication: ABDOMINAL DISCOMFORT
     Dosage: 300 MG, BID
     Route: 065
     Dates: start: 201501, end: 202006
  13. RANITIDINE CAPSULE [Suspect]
     Active Substance: RANITIDINE
     Indication: VOMITING
  14. RANITIDINE. [Suspect]
     Active Substance: RANITIDINE
     Indication: VOMITING

REACTIONS (1)
  - Breast cancer [Unknown]
